FAERS Safety Report 15286843 (Version 6)
Quarter: 2018Q4

REPORT INFORMATION
  Report Type: Spontaneous
  Country: CA (occurrence: CA)
  Receive Date: 20180816
  Receipt Date: 20181028
  Transmission Date: 20190204
  Serious: Yes (Hospitalization)
  Sender: FDA-Public Use
  Company Number: CA-BIOGEN-2018BI00621992

PATIENT
  Age: 47 Year
  Sex: Male

DRUGS (1)
  1. FAMPYRA [Suspect]
     Active Substance: DALFAMPRIDINE
     Indication: GAIT DISTURBANCE
     Route: 048
     Dates: start: 20160613, end: 20180910

REACTIONS (4)
  - Drug ineffective [Unknown]
  - Subdural haematoma [Not Recovered/Not Resolved]
  - Physical deconditioning [Unknown]
  - Expanded disability status scale score increased [Not Recovered/Not Resolved]

NARRATIVE: CASE EVENT DATE: 20180720
